FAERS Safety Report 5737158-8 (Version None)
Quarter: 2008Q2

REPORT INFORMATION
  Report Type: 
  Country: None (occurrence: None)
  Receive Date: 20080514
  Receipt Date: 20080505
  Transmission Date: 20081010
  Serious: Yes (Other)
  Sender: FDA-Public Use
  Company Number: US-ROCHE-562391

PATIENT
  Age: 61 Year
  Sex: Female

DRUGS (11)
  1. BONIVA [Suspect]
     Indication: OSTEOPOROSIS
     Route: 048
     Dates: start: 20070701
  2. CALTRATE + VITAMIN D [Concomitant]
     Dosage: DRUG REPORTED AS CALTRATE 600 WITH VITAMIN D
  3. CALTRATE + VITAMIN D [Concomitant]
     Dosage: DRUG REPORTED AS CALTRATE 600 WITH VITAMIN D
  4. CALTRATE + VITAMIN D [Concomitant]
     Dosage: DRUG REPORTED AS CALTRATE 600 WITH VITAMIN D
  5. PREVACID [Concomitant]
  6. ASPIRIN [Concomitant]
     Dosage: DRUG REPORTED AS ^1/2 ASPIRIN^
  7. FOLTX [Concomitant]
     Dosage: FREQUENCY: ONCE OR TWICE A WEEK
  8. FOLTX [Concomitant]
     Dosage: FREQUENCY: ONCE OR TWICE A WEEK
  9. FOLTX [Concomitant]
     Dosage: FREQUENCY: ONCE OR TWICE A WEEK
  10. PREMPRO [Concomitant]
  11. PREMPRO [Concomitant]

REACTIONS (2)
  - CATARACT [None]
  - VISION BLURRED [None]
